FAERS Safety Report 15765172 (Version 2)
Quarter: 2019Q1

REPORT INFORMATION
  Report Type: Spontaneous
  Country: US (occurrence: US)
  Receive Date: 20181227
  Receipt Date: 20190102
  Transmission Date: 20190417
  Serious: No
  Sender: FDA-Public Use
  Company Number: US-PCCINC-T201403362

PATIENT

DRUGS (9)
  1. CEFAZOLIN [Concomitant]
     Active Substance: CEFAZOLIN
     Dosage: UNK
     Route: 042
  2. MARCAINE [Concomitant]
     Active Substance: BUPIVACAINE HYDROCHLORIDE
     Dosage: UNK
     Route: 051
  3. GABLOFEN [Suspect]
     Active Substance: BACLOFEN
     Indication: MUSCLE SPASTICITY
     Dosage: 250 ?G, QD
     Route: 037
  4. LIORESAL [Concomitant]
     Active Substance: BACLOFEN
     Dosage: 300 ?G, QD
     Route: 037
     Dates: start: 20171130
  5. VANCOMYCIN [Concomitant]
     Active Substance: VANCOMYCIN
     Dosage: UNK
     Route: 042
  6. CEFTRIAXONE. [Concomitant]
     Active Substance: CEFTRIAXONE
     Dosage: UNK
     Route: 042
  7. LIORESAL [Concomitant]
     Active Substance: BACLOFEN
     Indication: MUSCLE SPASTICITY
     Dosage: 355 ?G, QD
     Route: 037
     Dates: start: 20171130
  8. GABLOFEN [Suspect]
     Active Substance: BACLOFEN
     Dosage: UNK
     Route: 037
  9. EPINEPHRINE. [Concomitant]
     Active Substance: EPINEPHRINE
     Dosage: UNK
     Route: 051

REACTIONS (6)
  - Muscle spasticity [Recovered/Resolved]
  - Irritability [Unknown]
  - Pruritus [Unknown]
  - Underdose [Unknown]
  - Device leakage [Unknown]
  - Hypertonia [Recovered/Resolved]
